FAERS Safety Report 7491556-3 (Version None)
Quarter: 2011Q2

REPORT INFORMATION
  Report Type: 
  Country: None (occurrence: None)
  Receive Date: 20110519
  Receipt Date: 20110505
  Transmission Date: 20111010
  Serious: Yes (Hospitalization)
  Sender: FDA-Public Use
  Company Number: US-CELGENEUS-163-21880-07090383

PATIENT
  Sex: Female
  Weight: 57.204 kg

DRUGS (13)
  1. ASPIRIN [Concomitant]
     Dosage: 81 MILLIGRAM
     Route: 048
     Dates: start: 20070828
  2. ACETAMINOPHEN [Concomitant]
     Dosage: 650 MILLIGRAM
     Route: 048
     Dates: start: 20070831
  3. MULTI-VITAMINS [Concomitant]
     Route: 065
  4. TRIAMTERENE [Concomitant]
     Route: 065
     Dates: end: 20070828
  5. COMPAZINE [Concomitant]
     Dosage: 10 MILLIGRAM
     Route: 051
  6. PREDNISONE [Suspect]
     Indication: MYELOPROLIFERATIVE DISORDER
     Route: 065
     Dates: start: 20070814, end: 20070828
  7. CALCIUM CARBONATE [Concomitant]
     Route: 065
  8. REVLIMID [Suspect]
     Indication: MYELOPROLIFERATIVE DISORDER
     Route: 048
     Dates: start: 20070814, end: 20070828
  9. HYDREA [Concomitant]
     Indication: MYELOPROLIFERATIVE DISORDER
     Dosage: 3 GRAM
     Route: 065
     Dates: start: 20070829
  10. BENADRYL [Concomitant]
     Dosage: 25 MILLIGRAM
     Route: 051
     Dates: start: 20070831
  11. PREMARIN [Concomitant]
     Route: 065
     Dates: end: 20070807
  12. PROTONIX [Concomitant]
     Dosage: 40 MILLIGRAM
     Route: 065
     Dates: start: 20070524, end: 20071002
  13. MEGACE [Concomitant]
     Route: 065
     Dates: end: 20070607

REACTIONS (1)
  - THROMBOCYTOSIS [None]
